FAERS Safety Report 7104285-2 (Version None)
Quarter: 2010Q4

REPORT INFORMATION
  Report Type: 
  Country: None (occurrence: None)
  Receive Date: 20101115
  Receipt Date: 20100616
  Transmission Date: 20110411
  Serious: Yes (Hospitalization)
  Sender: FDA-Public Use
  Company Number: US-ALLERGAN-1007929US

PATIENT
  Age: 42 Year
  Sex: Female

DRUGS (1)
  1. BOTOXA? [Suspect]
     Indication: BLEPHAROSPASM
     Dosage: 1 UNITS, EVERY 3 MONTHS
     Route: 030
     Dates: start: 20090101, end: 20090101

REACTIONS (4)
  - DYSPHONIA [None]
  - DYSPNOEA [None]
  - FATIGUE [None]
  - MUSCULAR WEAKNESS [None]
